FAERS Safety Report 5944092-7 (Version None)
Quarter: 2008Q4

REPORT INFORMATION
  Report Type: 
  Country: None (occurrence: None)
  Receive Date: 20081021
  Receipt Date: 20080602
  Transmission Date: 20090506
  Serious: Yes (Hospitalization, Other)
  Sender: FDA-Public Use
  Company Number: US-WYE-H04336608

PATIENT
  Age: 68 Year
  Sex: Female
  Weight: 59.02 kg

DRUGS (8)
  1. PREMARIN [Suspect]
     Indication: OESTROGEN REPLACEMENT THERAPY
     Dosage: ORAL
     Route: 048
     Dates: start: 19700101, end: 20080327
  2. REBIF [Suspect]
     Indication: MULTIPLE SCLEROSIS
     Dosage: 44 MCGS, 3 IN 1 WEEK, SUBCUTANEOUS
     Route: 058
     Dates: start: 20071015
  3. BACLOFEN [Concomitant]
  4. TRAZODONE HCL [Concomitant]
  5. LISINOPRIL [Concomitant]
  6. HYDROCHLOROTHIAZIDE [Concomitant]
  7. LEVOTHYROXINE SODIUM [Concomitant]
  8. IRON (IRON) [Concomitant]

REACTIONS (1)
  - THROMBOSIS [None]
